FAERS Safety Report 10224461 (Version 2)
Quarter: 2014Q3

REPORT INFORMATION
  Report Type: Spontaneous
  Country: FR (occurrence: FR)
  Receive Date: 20140609
  Receipt Date: 20140707
  Transmission Date: 20150326
  Serious: Yes (Hospitalization, Other)
  Sender: FDA-Public Use
  Company Number: FR-PFIZER INC-2014153668

PATIENT
  Age: 67 Year
  Sex: Female

DRUGS (5)
  1. INEXIUM [Suspect]
     Active Substance: ESOMEPRAZOLE
     Dosage: 40 MG, 1X/DAY
     Route: 048
     Dates: start: 2014, end: 20140415
  2. VALIUM [Suspect]
     Active Substance: DIAZEPAM
     Dosage: 5 MG, 3X/DAY
     Route: 048
     Dates: start: 201402, end: 20140415
  3. LEVOTHYROX [Concomitant]
     Active Substance: LEVOTHYROXINE
     Dosage: UNK
     Dates: start: 201308
  4. EFFEXOR LP [Suspect]
     Active Substance: VENLAFAXINE HYDROCHLORIDE
     Dosage: 75 MG, 2X/DAY
     Route: 048
     Dates: start: 201302, end: 20140415
  5. THERALENE [Suspect]
     Active Substance: TRIMEPRAZINE
     Dosage: 5 MG, 4X/DAY
     Route: 048
     Dates: start: 201402, end: 20140415

REACTIONS (6)
  - Hepatomegaly [Unknown]
  - Mental disorder [Unknown]
  - Pancreatitis [Recovered/Resolved]
  - Confusional state [Unknown]
  - Hepatic steatosis [Unknown]
  - Arthropathy [Unknown]

NARRATIVE: CASE EVENT DATE: 20140415
